FAERS Safety Report 13855793 (Version 1)
Quarter: 2017Q3

REPORT INFORMATION
  Report Type: Spontaneous
  Country: AU (occurrence: AU)
  Receive Date: 20170810
  Receipt Date: 20170810
  Transmission Date: 20171127
  Serious: Yes (Death)
  Sender: FDA-Public Use
  Company Number: AU-BAYER-2017-148707

PATIENT
  Age: 77 Year
  Sex: Male

DRUGS (6)
  1. ETHAMBUTOL [Concomitant]
     Active Substance: ETHAMBUTOL HYDROCHLORIDE
     Indication: DISSEMINATED BACILLUS CALMETTE-GUERIN INFECTION
  2. AMIKACIN [Concomitant]
     Active Substance: AMIKACIN
     Indication: DISSEMINATED BACILLUS CALMETTE-GUERIN INFECTION
  3. LINEZOLID. [Concomitant]
     Active Substance: LINEZOLID
     Indication: DISSEMINATED BACILLUS CALMETTE-GUERIN INFECTION
  4. DEXAMETHASONE. [Concomitant]
     Active Substance: DEXAMETHASONE
     Indication: DISSEMINATED BACILLUS CALMETTE-GUERIN INFECTION
  5. MOXIFLOXACIN ORAL [Suspect]
     Active Substance: MOXIFLOXACIN
     Indication: DISSEMINATED BACILLUS CALMETTE-GUERIN INFECTION
     Dosage: UNK
  6. RIFAMPICIN [Concomitant]
     Active Substance: RIFAMPIN
     Indication: DISSEMINATED BACILLUS CALMETTE-GUERIN INFECTION

REACTIONS (3)
  - Product use in unapproved indication [None]
  - Off label use [None]
  - Cardiac arrest [Fatal]
